FAERS Safety Report 25680911 (Version 1)
Quarter: 2025Q3

REPORT INFORMATION
  Report Type: Spontaneous
  Country: US (occurrence: US)
  Receive Date: 20250814
  Receipt Date: 20250814
  Transmission Date: 20251020
  Serious: No
  Sender: PFIZER
  Company Number: US-PFIZER INC-202500161002

PATIENT
  Age: 62 Year
  Sex: Female

DRUGS (3)
  1. EXEMESTANE [Suspect]
     Active Substance: EXEMESTANE
  2. ANASTROZOLE [Concomitant]
     Active Substance: ANASTROZOLE
  3. LETROZOLE [Concomitant]
     Active Substance: LETROZOLE

REACTIONS (3)
  - Arthralgia [Unknown]
  - Weight increased [Unknown]
  - Impaired quality of life [Unknown]
